FAERS Safety Report 4563524-2 (Version None)
Quarter: 2005Q1

REPORT INFORMATION
  Report Type: 
  Country: None (occurrence: None)
  Receive Date: 20050128
  Receipt Date: 20040811
  Transmission Date: 20050727
  Serious: No
  Sender: FDA-Public Use
  Company Number: US-GLAXOSMITHKLINE-A0521828A

PATIENT
  Sex: Male

DRUGS (5)
  1. WELLBUTRIN [Suspect]
     Indication: DEPRESSION
     Route: 048
  2. HYZAAR [Concomitant]
  3. ZOCOR [Concomitant]
  4. NORVASC [Concomitant]
  5. FLOMAX [Concomitant]

REACTIONS (1)
  - DYSPNOEA [None]
